FAERS Safety Report 9444199 (Version 1)
Quarter: 2013Q3

REPORT INFORMATION
  Report Type: Spontaneous
  Country: US (occurrence: None)
  Receive Date: 20130731
  Receipt Date: 20130731
  Transmission Date: 20140515
  Serious: Yes (Hospitalization)
  Sender: FDA-Public Use
  Company Number: 2013PROUSA02908

PATIENT
  Age: 71 Year
  Sex: Male
  Weight: 78.9 kg

DRUGS (3)
  1. PROVENGE (SIPULEUCEL-T) SUSPENSION, 250ML [Suspect]
     Indication: PROSTATE CANCER METASTATIC
     Dosage: SINGLE
     Route: 042
     Dates: start: 20130517, end: 20130517
  2. XGEVA (DENOSUMAB) [Concomitant]
  3. LUPRON (LEUPRORELIN ACETATE) [Concomitant]

REACTIONS (5)
  - Renal failure acute [None]
  - Hypocalcaemia [None]
  - Hydronephrosis [None]
  - Fatigue [None]
  - Malaise [None]
